FAERS Safety Report 9499875 (Version 1)
Quarter: 2013Q3

REPORT INFORMATION
  Report Type: Spontaneous
  Country: US (occurrence: US)
  Receive Date: 20130905
  Receipt Date: 20130905
  Transmission Date: 20140515
  Serious: Yes (Other)
  Sender: FDA-Public Use
  Company Number: US-SANOFI-AVENTIS-2013SA087975

PATIENT
  Age: 48 Year
  Sex: Male

DRUGS (2)
  1. LANTUS SOLOSTAR [Suspect]
     Dosage: DOSE:40 UNIT(S)
     Route: 058
  2. SOLOSTAR [Concomitant]

REACTIONS (5)
  - Cerebrovascular accident [Unknown]
  - Hypertension [Unknown]
  - Arthralgia [Unknown]
  - Arthralgia [Unknown]
  - Sleep disorder [Unknown]
